FAERS Safety Report 21095578 (Version 9)
Quarter: 2024Q2

REPORT INFORMATION
  Report Type: Spontaneous
  Country: US (occurrence: US)
  Receive Date: 20220718
  Receipt Date: 20240507
  Transmission Date: 20240716
  Serious: Yes (Hospitalization)
  Sender: FDA-Public Use
  Company Number: US-PFIZER INC-202200965708

PATIENT
  Age: 79 Year
  Sex: Female
  Weight: 99.79 kg

DRUGS (3)
  1. IBRANCE [Suspect]
     Active Substance: PALBOCICLIB
     Indication: Breast cancer female
     Dosage: 125 MG, 1X/DAY (CYCLIC)
     Route: 048
     Dates: start: 202206
  2. IBRANCE [Suspect]
     Active Substance: PALBOCICLIB
     Indication: Thrombocytopenia
     Dosage: 100 MG, CYCLIC (TABLET DAILY WITH OR WITHOUT FOOD 21)
  3. IBRANCE [Suspect]
     Active Substance: PALBOCICLIB
     Dosage: 75 MG

REACTIONS (8)
  - COVID-19 [Unknown]
  - Diarrhoea [Unknown]
  - Urinary tract infection [Unknown]
  - Gastrooesophageal reflux disease [Recovering/Resolving]
  - Epistaxis [Unknown]
  - Stomatitis [Unknown]
  - Hyperkeratosis [Unknown]
  - Oral herpes [Unknown]

NARRATIVE: CASE EVENT DATE: 20220101
